FAERS Safety Report 14668984 (Version 2)
Quarter: 2018Q2

REPORT INFORMATION
  Report Type: Spontaneous
  Country: JP (occurrence: JP)
  Receive Date: 20180322
  Receipt Date: 20180417
  Transmission Date: 20180711
  Serious: Yes (Hospitalization, Other)
  Sender: FDA-Public Use
  Company Number: JP-MITSUBISHI TANABE PHARMA CORPORATION-MTPC2018-0000995

PATIENT
  Age: 78 Year
  Sex: Male
  Weight: 45 kg

DRUGS (12)
  1. RADICUT [Suspect]
     Active Substance: EDARAVONE
     Route: 041
     Dates: start: 20180115, end: 20180116
  2. RADICUT [Suspect]
     Active Substance: EDARAVONE
     Route: 042
     Dates: start: 20170912, end: 20170921
  3. RADICUT [Suspect]
     Active Substance: EDARAVONE
     Indication: AMYOTROPHIC LATERAL SCLEROSIS
     Route: 041
     Dates: end: 20171023
  4. RADICUT [Suspect]
     Active Substance: EDARAVONE
     Route: 041
     Dates: start: 20171223, end: 20171229
  5. MAGNESIUM OXIDE. [Concomitant]
     Active Substance: MAGNESIUM OXIDE
     Route: 048
  6. MAGNESIUM OXIDE. [Concomitant]
     Active Substance: MAGNESIUM OXIDE
     Route: 048
     Dates: start: 201802
  7. RADICUT [Suspect]
     Active Substance: EDARAVONE
     Indication: AMYOTROPHIC LATERAL SCLEROSIS
     Route: 042
     Dates: start: 20170711, end: 20170724
  8. RADICUT [Suspect]
     Active Substance: EDARAVONE
     Route: 042
     Dates: start: 20171108, end: 20171118
  9. AMITIZA [Concomitant]
     Active Substance: LUBIPROSTONE
     Route: 048
  10. RADICUT [Suspect]
     Active Substance: EDARAVONE
     Route: 041
     Dates: start: 20171204, end: 20171207
  11. RADICUT [Suspect]
     Active Substance: EDARAVONE
     Route: 042
     Dates: start: 20170812, end: 20170821
  12. PURGATIVES AND CLYSTERS [Concomitant]
     Route: 054

REACTIONS (18)
  - Rash [Recovering/Resolving]
  - Decreased appetite [Recovering/Resolving]
  - Productive cough [Recovering/Resolving]
  - Urticaria [Unknown]
  - Productive cough [Recovering/Resolving]
  - Pyrexia [Unknown]
  - Diarrhoea [Unknown]
  - Respiratory failure [Recovering/Resolving]
  - Dermatitis allergic [Unknown]
  - Productive cough [Recovering/Resolving]
  - Pyrexia [Recovering/Resolving]
  - Dyspnoea [Recovering/Resolving]
  - Bronchitis [Recovering/Resolving]
  - Dyspnoea [Recovering/Resolving]
  - Dysgeusia [Recovering/Resolving]
  - Dyspnoea [Recovering/Resolving]
  - Dyspnoea [Unknown]
  - Pruritus [Recovering/Resolving]

NARRATIVE: CASE EVENT DATE: 201707
